FAERS Safety Report 9402216 (Version 1)
Quarter: 2013Q3

REPORT INFORMATION
  Report Type: Spontaneous
  Country: US (occurrence: US)
  Receive Date: 20130716
  Receipt Date: 20130716
  Transmission Date: 20140515
  Serious: Yes (Other)
  Sender: FDA-Public Use
  Company Number: US-BAYER-2013-083596

PATIENT
  Age: 20 Year
  Sex: Female

DRUGS (2)
  1. MIRENA [Suspect]
     Indication: CONTRACEPTION
     Dosage: 20 MCG/24HR, CONT
     Route: 015
     Dates: start: 201305
  2. CITALOPRAM [Concomitant]
     Indication: ANXIETY
     Dosage: UNK

REACTIONS (5)
  - Vaginal haemorrhage [None]
  - Abdominal pain lower [None]
  - Vaginal discharge [None]
  - Mood altered [None]
  - Ovarian cyst [None]
